FAERS Safety Report 16828402 (Version 1)
Quarter: 2019Q4

REPORT INFORMATION
  Report Type: Spontaneous
  Country: US (occurrence: US)
  Receive Date: 20190919
  Receipt Date: 20190919
  Transmission Date: 20200122
  Serious: Yes (Hospitalization)
  Sender: FDA-Public Use
  Company Number: None

PATIENT
  Sex: Female

DRUGS (5)
  1. SMZ/TMP [Concomitant]
     Active Substance: SULFAMETHOXAZOLE\TRIMETHOPRIM
  2. PRAVASTATIN. [Concomitant]
     Active Substance: PRAVASTATIN
  3. CARVEDILOL. [Concomitant]
     Active Substance: CARVEDILOL
  4. SILDENAFIL. [Suspect]
     Active Substance: SILDENAFIL
     Indication: ESSENTIAL HYPERTENSION
     Route: 048
  5. LISINOPRIL. [Concomitant]
     Active Substance: LISINOPRIL

REACTIONS (1)
  - Heart valve replacement [None]
